FAERS Safety Report 5854168-0 (Version None)
Quarter: 2008Q3

REPORT INFORMATION
  Report Type: 
  Country: None (occurrence: None)
  Receive Date: 20080822
  Receipt Date: 20080815
  Transmission Date: 20090109
  Serious: Yes (Hospitalization)
  Sender: FDA-Public Use
  Company Number: US-JNJFOC-20080804046

PATIENT
  Age: 59 Year
  Sex: Female
  Weight: 58.97 kg

DRUGS (7)
  1. TOPAMAX [Suspect]
     Route: 048
  2. TOPAMAX [Suspect]
     Indication: MIGRAINE PROPHYLAXIS
     Route: 048
  3. CELEXA [Concomitant]
     Indication: ANXIETY
     Route: 048
  4. WELLBUTRIN [Concomitant]
     Indication: DEPRESSION
     Route: 048
  5. SERAX [Concomitant]
     Indication: DEPRESSION
     Route: 048
  6. PROTONIX [Concomitant]
     Indication: GASTROOESOPHAGEAL REFLUX DISEASE
     Route: 048
  7. VIVELLE-DOT [Concomitant]
     Indication: HORMONE REPLACEMENT THERAPY

REACTIONS (6)
  - BRONCHITIS [None]
  - HEADACHE [None]
  - MIGRAINE [None]
  - SINUSITIS [None]
  - THERAPEUTIC RESPONSE UNEXPECTED [None]
  - UTERINE LEIOMYOMA [None]
